FAERS Safety Report 23142758 (Version 5)
Quarter: 2024Q1

REPORT INFORMATION
  Report Type: Spontaneous
  Country: JP (occurrence: JP)
  Receive Date: 20231103
  Receipt Date: 20240226
  Transmission Date: 20240410
  Serious: Yes (Hospitalization)
  Sender: FDA-Public Use
  Company Number: JP-Eisai-202308925_LEN-RCC_P_1

PATIENT
  Age: 77 Year
  Sex: Male
  Weight: 51 kg

DRUGS (22)
  1. LENVIMA [Suspect]
     Active Substance: LENVATINIB
     Indication: Renal cell carcinoma
     Route: 048
     Dates: start: 20230130, end: 20230228
  2. LENVIMA [Suspect]
     Active Substance: LENVATINIB
     Route: 048
     Dates: start: 20230417, end: 20230710
  3. KEYTRUDA [Suspect]
     Active Substance: PEMBROLIZUMAB
     Indication: Renal cell carcinoma
     Route: 041
     Dates: start: 20230130
  4. KEYTRUDA [Suspect]
     Active Substance: PEMBROLIZUMAB
     Route: 041
     Dates: start: 20230227
  5. OXYCODONE [Suspect]
     Active Substance: OXYCODONE\OXYCODONE HYDROCHLORIDE
     Indication: Product used for unknown indication
     Dosage: UNKNOWN DOSE AND FREQUENCY
     Route: 048
  6. OXYCODONE [Suspect]
     Active Substance: OXYCODONE\OXYCODONE HYDROCHLORIDE
     Dosage: UNKNOWN DOSE AND FREQUENCY
  7. FENTANYL [Suspect]
     Active Substance: FENTANYL\FENTANYL CITRATE
     Indication: Product used for unknown indication
     Dosage: UNKNOWN DOSE AND FREQUENCY
     Route: 048
  8. FENTANYL [Suspect]
     Active Substance: FENTANYL\FENTANYL CITRATE
     Dosage: UNKNOWN DOSE AND FREQUENCY
  9. DICLOFENAC SODIUM [Suspect]
     Active Substance: DICLOFENAC\DICLOFENAC SODIUM
     Indication: Product used for unknown indication
     Dosage: DOSE UNKNOWN
     Route: 048
  10. SILODOSIN [Concomitant]
     Active Substance: SILODOSIN
     Indication: Product used for unknown indication
     Route: 048
     Dates: start: 20230113
  11. AMITIZA [Concomitant]
     Active Substance: LUBIPROSTONE
     Indication: Product used for unknown indication
     Route: 048
     Dates: start: 20230113
  12. EPERISONE HYDROCHLORIDE [Concomitant]
     Active Substance: EPERISONE HYDROCHLORIDE
     Indication: Product used for unknown indication
     Route: 048
  13. EPERISONE HYDROCHLORIDE [Concomitant]
     Active Substance: EPERISONE HYDROCHLORIDE
     Route: 048
  14. OPALMON [Concomitant]
     Active Substance: LIMAPROST
     Indication: Product used for unknown indication
     Route: 048
  15. OPALMON [Concomitant]
     Active Substance: LIMAPROST
     Route: 048
  16. REBAMIPIDE [Concomitant]
     Active Substance: REBAMIPIDE
     Indication: Product used for unknown indication
     Route: 048
  17. MIROGABALIN BESYLATE [Concomitant]
     Active Substance: MIROGABALIN BESYLATE
     Indication: Product used for unknown indication
     Route: 048
  18. HERBALS [Concomitant]
     Active Substance: HERBALS
  19. TENELIGLIPTIN [Concomitant]
     Active Substance: TENELIGLIPTIN
     Indication: Product used for unknown indication
     Route: 048
  20. MAGNESIUM OXIDE [Concomitant]
     Active Substance: MAGNESIUM OXIDE
     Indication: Product used for unknown indication
     Route: 048
  21. OPIUM ALKALOIDS PREPARATIONS [Concomitant]
     Indication: Cancer pain
     Dosage: UNKNOWN DOSE AND FREQUENCY
  22. LORNOXICAM [Concomitant]
     Active Substance: LORNOXICAM
     Indication: Product used for unknown indication
     Route: 048

REACTIONS (2)
  - Decreased appetite [Recovered/Resolved]
  - Wernicke^s encephalopathy [Unknown]

NARRATIVE: CASE EVENT DATE: 20230228
